FAERS Safety Report 8680300 (Version 3)
Quarter: 2013Q4

REPORT INFORMATION
  Report Type: Spontaneous
  Country: US (occurrence: US)
  Receive Date: 20120724
  Receipt Date: 20131108
  Transmission Date: 20140711
  Serious: Yes (Hospitalization)
  Sender: FDA-Public Use
  Company Number: US-009507513-2011SP040939

PATIENT
  Sex: Female
  Weight: 88.91 kg

DRUGS (2)
  1. NUVARING [Suspect]
     Indication: CONTRACEPTION
     Dosage: UNK
     Route: 067
     Dates: start: 20071222
  2. NUVARING [Suspect]
     Dosage: UNK
     Dates: start: 2009, end: 20090829

REACTIONS (7)
  - Deep vein thrombosis [Unknown]
  - Drug hypersensitivity [Unknown]
  - Vulvovaginal mycotic infection [Unknown]
  - Cystitis [Unknown]
  - Drug hypersensitivity [Unknown]
  - Dysfunctional uterine bleeding [Unknown]
  - Vomiting [Unknown]
